FAERS Safety Report 5628454-3 (Version None)
Quarter: 2008Q1

REPORT INFORMATION
  Report Type: 
  Country: None (occurrence: None)
  Receive Date: 20080215
  Receipt Date: 20080208
  Transmission Date: 20080703
  Serious: Yes (Hospitalization)
  Sender: FDA-Public Use
  Company Number: US-GENENTECH-252959

PATIENT
  Age: 60 Year
  Sex: Female
  Weight: 81.7 kg

DRUGS (2)
  1. BEVACIZUMAB [Suspect]
     Indication: GLIOBLASTOMA MULTIFORME
     Dosage: 10 MG/KG, DAYS 1+15
     Route: 042
     Dates: start: 20071012
  2. TEMOZOLOMIDE [Concomitant]
     Indication: GLIOBLASTOMA MULTIFORME
     Dosage: 75 MG/M2, QDX21
     Route: 048
     Dates: start: 20071012

REACTIONS (1)
  - MENTAL STATUS CHANGES [None]
